FAERS Safety Report 7594164-9 (Version None)
Quarter: 2011Q3

REPORT INFORMATION
  Report Type: 
  Country: None (occurrence: None)
  Receive Date: 20110706
  Receipt Date: 20110704
  Transmission Date: 20111222
  Serious: Yes (Other)
  Sender: FDA-Public Use
  Company Number: NL-ROXANE LABORATORIES, INC.-2011-RO-00940RO

PATIENT
  Age: 19 Year
  Sex: Female

DRUGS (2)
  1. MERCAPTOPURINE [Suspect]
     Indication: CROHN'S DISEASE
     Dosage: 50 MG
  2. INFLIXIMAB [Suspect]
     Indication: CROHN'S DISEASE

REACTIONS (1)
  - MELANOCYTIC NAEVUS [None]
